FAERS Safety Report 8832042 (Version 1)
Quarter: 2012Q4

REPORT INFORMATION
  Report Type: 
  Country: US (occurrence: US)
  Receive Date: 20121009
  Receipt Date: 20121009
  Transmission Date: 20130627
  Serious: No
  Sender: FDA-Public Use
  Company Number: US-PFIZER INC-2012245031

PATIENT
  Sex: Male

DRUGS (2)
  1. VIAGRA [Suspect]
     Dosage: UNK
     Route: 048
     Dates: start: 201207
  2. RIVAROXABAN [Suspect]
     Dosage: UNK
     Route: 048
     Dates: start: 201207

REACTIONS (1)
  - Fatigue [Not Recovered/Not Resolved]
